FAERS Safety Report 19143680 (Version 4)
Quarter: 2021Q4

REPORT INFORMATION
  Report Type: Report from Study
  Country: CA (occurrence: None)
  Receive Date: 20210416
  Receipt Date: 20211125
  Transmission Date: 20220303
  Serious: Yes (Hospitalization)
  Sender: FDA-Public Use
  Company Number: CA-ROCHE-2810717

PATIENT
  Age: 59 Year
  Sex: Male

DRUGS (4)
  1. RITUXIMAB [Suspect]
     Active Substance: RITUXIMAB
     Indication: Haematological malignancy
     Dosage: DAY 1,?375 MG/M2 IV, 1.5 - 6 HOURS D1 (PRIOR TO CISPLATIN)
     Route: 058
     Dates: start: 20210126, end: 20210323
  2. GEMCITABINE [Suspect]
     Active Substance: GEMCITABINE
     Indication: Haematological malignancy
     Dosage: DAY 1 AND DAY 8?1000 MG/M2, IV 30 MIN D1, D8
     Route: 042
     Dates: start: 20210126, end: 20210330
  3. CISPLATIN [Suspect]
     Active Substance: CISPLATIN
     Indication: Haematological malignancy
     Dosage: DAY 1?75 MG/M2 IV, 1 HOUR D1
     Route: 042
     Dates: start: 20210126, end: 20210216
  4. DEXAMETHASONE [Suspect]
     Active Substance: DEXAMETHASONE
     Indication: Haematological malignancy
     Dosage: DAILY?40 MG DAILY PO D1 - D4
     Route: 048
     Dates: start: 20210126, end: 20210326

REACTIONS (1)
  - Dysphagia [Not Recovered/Not Resolved]

NARRATIVE: CASE EVENT DATE: 20210408
